FAERS Safety Report 16763388 (Version 1)
Quarter: 2019Q3

REPORT INFORMATION
  Report Type: Spontaneous
  Country: FR (occurrence: FR)
  Receive Date: 20190902
  Receipt Date: 20190902
  Transmission Date: 20191005
  Serious: Yes (Hospitalization)
  Sender: FDA-Public Use
  Company Number: FR-TEVA-2019-FR-1100029

PATIENT
  Age: 71 Year
  Sex: Male

DRUGS (10)
  1. GLICLAZIDE [Concomitant]
     Active Substance: GLICLAZIDE
     Route: 048
  2. PERINDOPRIL [Concomitant]
     Active Substance: PERINDOPRIL
     Route: 048
  3. PRAVASTATINE SODIQUE [Concomitant]
     Active Substance: PRAVASTATIN SODIUM
     Route: 048
  4. PREVISCAN 20 MG, COMPRIME SECABLE [Concomitant]
     Active Substance: FLUINDIONE
     Route: 048
  5. METFORMINE [Concomitant]
     Active Substance: METFORMIN HYDROCHLORIDE
     Route: 048
  6. INDAPAMIDE. [Concomitant]
     Active Substance: INDAPAMIDE
     Route: 048
  7. KALEORID LP 1000 MG, COMPRIME A LIBERATION PROLONGEE [Concomitant]
     Active Substance: POTASSIUM CHLORIDE
     Route: 048
  8. ALLOPURINOL. [Suspect]
     Active Substance: ALLOPURINOL
     Indication: HYPERURICAEMIA
     Dosage: 100 MG
     Route: 048
     Dates: start: 20161011, end: 20161012
  9. BISOPROLOL (FUMARATE ACIDE DE) [Concomitant]
     Active Substance: BISOPROLOL FUMARATE
     Route: 048
  10. KARDEGIC [Concomitant]
     Active Substance: ASPIRIN DL-LYSINE
     Route: 048

REACTIONS (1)
  - Fixed eruption [Recovered/Resolved]

NARRATIVE: CASE EVENT DATE: 20161012
